FAERS Safety Report 6570173-3 (Version None)
Quarter: 2010Q1

REPORT INFORMATION
  Report Type: 
  Country: None (occurrence: None)
  Receive Date: 20100204
  Receipt Date: 20100129
  Transmission Date: 20100710
  Serious: Yes (Death, Other)
  Sender: FDA-Public Use
  Company Number: AR-PFIZER INC-2009313573

PATIENT
  Age: 60 Year
  Sex: Female

DRUGS (1)
  1. CHAMPIX [Suspect]
     Indication: SMOKING CESSATION THERAPY
     Dosage: UNK
     Route: 048
     Dates: start: 20090501, end: 20090601

REACTIONS (3)
  - COMPLETED SUICIDE [None]
  - DEPRESSION [None]
  - PERSONALITY DISORDER [None]
